FAERS Safety Report 11563295 (Version 1)
Quarter: 2015Q3

REPORT INFORMATION
  Report Type: Spontaneous
  Country: US (occurrence: US)
  Receive Date: 20150916
  Receipt Date: 20150916
  Transmission Date: 20151125
  Serious: No
  Sender: FDA-Public Use
  Company Number: US-ELI_LILLY_AND_COMPANY-US200901004384

PATIENT
  Sex: Female

DRUGS (6)
  1. FORTEO [Suspect]
     Active Substance: TERIPARATIDE
     Dates: start: 2008
  2. VITAMINS [Concomitant]
     Active Substance: VITAMINS
  3. LEXAPRO [Concomitant]
     Active Substance: ESCITALOPRAM OXALATE
     Dosage: 10 MG, UNK
  4. CALCIUM WITH VITAMIN D [Concomitant]
     Active Substance: CALCIUM\VITAMIN D
  5. PREVACID [Concomitant]
     Active Substance: LANSOPRAZOLE
  6. PROBIOTICA [Concomitant]
     Active Substance: PROBIOTICS NOS

REACTIONS (6)
  - Back pain [Recovered/Resolved]
  - Tremor [Recovered/Resolved]
  - Injection site haemorrhage [Recovered/Resolved]
  - Palpitations [Recovered/Resolved]
  - Flank pain [Recovered/Resolved]
  - Chills [Recovered/Resolved]

NARRATIVE: CASE EVENT DATE: 20090125
